FAERS Safety Report 20211888 (Version 1)
Quarter: 2021Q4

REPORT INFORMATION
  Report Type: Other
  Country: US (occurrence: US)
  Receive Date: 20211221
  Receipt Date: 20211221
  Transmission Date: 20220303
  Serious: No
  Sender: FDA-Public Use
  Company Number: US-ACORDA-ACO_170283_2021

PATIENT
  Age: 71 Year
  Sex: Female

DRUGS (5)
  1. INBRIJA [Suspect]
     Active Substance: LEVODOPA
     Indication: On and off phenomenon
     Dosage: 84 MILLIGRAM, AS NEEDED, NOT TO EXCEED 5 DOSES PER DAY
  2. INBRIJA [Suspect]
     Active Substance: LEVODOPA
     Indication: Parkinson^s disease
  3. CARBIDOPA\LEVODOPA [Concomitant]
     Active Substance: CARBIDOPA\LEVODOPA
     Indication: Product used for unknown indication
     Dosage: 25/100 MG; 14 CAPSULES PER DAY
     Route: 065
  4. CARBIDOPA\LEVODOPA [Concomitant]
     Active Substance: CARBIDOPA\LEVODOPA
     Dosage: ER; AT NIGHT
     Route: 065
  5. PRAMIPEXOLE [Concomitant]
     Active Substance: PRAMIPEXOLE
     Indication: Product used for unknown indication
     Dosage: 2 TABLETS 2 TIMES A DAY
     Route: 065

REACTIONS (12)
  - Condition aggravated [Not Recovered/Not Resolved]
  - Product storage error [Unknown]
  - Therapeutic product effect variable [Unknown]
  - Freezing phenomenon [Not Recovered/Not Resolved]
  - Device use issue [Unknown]
  - Tremor [Not Recovered/Not Resolved]
  - Limb discomfort [Not Recovered/Not Resolved]
  - Chronic obstructive pulmonary disease [Not Recovered/Not Resolved]
  - Heart rate increased [Not Recovered/Not Resolved]
  - Product residue present [Unknown]
  - Cough [Not Recovered/Not Resolved]
  - Therapy cessation [Unknown]

NARRATIVE: CASE EVENT DATE: 20210909
